FAERS Safety Report 9730419 (Version 2)
Quarter: 2013Q4

REPORT INFORMATION
  Report Type: Spontaneous
  Country: US (occurrence: US)
  Receive Date: 20131202
  Receipt Date: 20131202
  Transmission Date: 20140711
  Serious: Yes (Other)
  Sender: FDA-Public Use
  Company Number: US-GILEAD-2008-0018655

PATIENT
  Sex: Male
  Weight: 54.88 kg

DRUGS (7)
  1. TRUVADA [Suspect]
     Indication: HIV INFECTION
     Route: 048
     Dates: start: 20080702, end: 20081020
  2. BOOSTED REYATAZ [Suspect]
     Dates: start: 20080702, end: 20081020
  3. RITONAVIR [Suspect]
     Dates: start: 20080702, end: 20081020
  4. VITAMIN B COMPLEX [Concomitant]
  5. QVAR MDI [Concomitant]
  6. COMBIVENT MDI [Concomitant]
  7. NICOTINE [Concomitant]

REACTIONS (1)
  - Renal failure acute [Unknown]
